FAERS Safety Report 13143264 (Version 5)
Quarter: 2018Q3

REPORT INFORMATION
  Report Type: Spontaneous
  Country: FR (occurrence: FR)
  Receive Date: 20170124
  Receipt Date: 20180920
  Transmission Date: 20181010
  Serious: Yes (Hospitalization, Other)
  Sender: FDA-Public Use
  Company Number: FR-GLAXOSMITHKLINE-FR2016GSK093577

PATIENT
  Age: 50 Year
  Sex: Female
  Weight: 96 kg

DRUGS (5)
  1. LAMICTAL [Suspect]
     Active Substance: LAMOTRIGINE
     Dosage: 100 MG, QD
     Route: 048
  2. LAMOTRIGINE. [Suspect]
     Active Substance: LAMOTRIGINE
     Indication: PRODUCT USED FOR UNKNOWN INDICATION
     Dosage: 100 MG, UNK
     Route: 048
     Dates: start: 201605
  3. ALPRAZOLAM. [Concomitant]
     Active Substance: ALPRAZOLAM
     Indication: PRODUCT USED FOR UNKNOWN INDICATION
     Dosage: 0.5 MG, UNK
     Route: 048
  4. LAMICTAL [Suspect]
     Active Substance: LAMOTRIGINE
     Indication: DEPRESSION
     Dosage: 1 DF(TABLET), Z 25 MG DAILY AT BEDTIME
     Route: 048
     Dates: start: 20160414, end: 20160524
  5. LORMETAZEPAM [Concomitant]
     Active Substance: LORMETAZEPAM
     Indication: PRODUCT USED FOR UNKNOWN INDICATION
     Dosage: 2 MG, UNK

REACTIONS (31)
  - Toxic skin eruption [Recovered/Resolved with Sequelae]
  - Conjunctivitis [Recovering/Resolving]
  - Eating disorder [Recovering/Resolving]
  - Ligneous conjunctivitis [Unknown]
  - Fatigue [Unknown]
  - Eye disorder [Unknown]
  - Oral disorder [Recovering/Resolving]
  - Corneal operation [Unknown]
  - Gingival pain [Unknown]
  - Pharyngeal oedema [Unknown]
  - Dysphagia [Recovering/Resolving]
  - Genital ulceration [Unknown]
  - Visual acuity reduced [Not Recovered/Not Resolved]
  - Mucous membrane disorder [Unknown]
  - Blindness [Unknown]
  - Tongue oedema [Unknown]
  - Erythema multiforme [Recovered/Resolved with Sequelae]
  - Stevens-Johnson syndrome [Recovered/Resolved with Sequelae]
  - Eye pain [Unknown]
  - Mouth ulceration [Recovering/Resolving]
  - Photophobia [Not Recovered/Not Resolved]
  - Fibrosis [Not Recovered/Not Resolved]
  - Skin burning sensation [Unknown]
  - Punctate keratitis [Unknown]
  - Blood blister [Recovering/Resolving]
  - Vision blurred [Not Recovered/Not Resolved]
  - Hyperthermia [Unknown]
  - Odynophagia [Unknown]
  - Sjogren^s syndrome [Unknown]
  - Entropion [Recovered/Resolved]
  - Herpes virus infection [Unknown]

NARRATIVE: CASE EVENT DATE: 2016
